FAERS Safety Report 9692079 (Version 1)
Quarter: 2013Q4

REPORT INFORMATION
  Report Type: Spontaneous
  Country: US (occurrence: US)
  Receive Date: 20131118
  Receipt Date: 20131118
  Transmission Date: 20140711
  Serious: Yes (Hospitalization)
  Sender: FDA-Public Use
  Company Number: US-BIOGENIDEC-2013BI108003

PATIENT
  Age: 39 Year
  Sex: Female

DRUGS (2)
  1. AVONEX [Suspect]
     Indication: MULTIPLE SCLEROSIS
     Route: 030
  2. AMPYRA [Concomitant]
     Indication: MULTIPLE SCLEROSIS
     Dates: start: 20111201, end: 20120301

REACTIONS (5)
  - Pancreatitis [Recovered/Resolved]
  - Hysterectomy [Recovered/Resolved]
  - Vaginal haematoma [Recovered/Resolved]
  - Transfusion [Recovered/Resolved]
  - Intestinal obstruction [Recovered/Resolved]
